FAERS Safety Report 7230416-X (Version None)
Quarter: 2011Q1

REPORT INFORMATION
  Report Type: 
  Country: None (occurrence: None)
  Receive Date: 20110118
  Receipt Date: 20110114
  Transmission Date: 20110831
  Serious: Yes (Hospitalization)
  Sender: FDA-Public Use
  Company Number: US-PFIZER INC-2010163941

PATIENT
  Sex: Female

DRUGS (1)
  1. CLEOCIN [Suspect]

REACTIONS (2)
  - OESOPHAGEAL HAEMORRHAGE [None]
  - CHEST PAIN [None]
